FAERS Safety Report 21572430 (Version 2)
Quarter: 2022Q4

REPORT INFORMATION
  Report Type: Spontaneous
  Country: US (occurrence: US)
  Receive Date: 20221109
  Receipt Date: 20221109
  Transmission Date: 20230112
  Serious: Yes (Hospitalization, Other)
  Sender: FDA-Public Use
  Company Number: US-BIOVITRUM-2022US12714

PATIENT
  Sex: Male

DRUGS (1)
  1. KINERET [Suspect]
     Active Substance: ANAKINRA
     Indication: Pericarditis
     Dates: start: 20220907, end: 20221029

REACTIONS (4)
  - Gastrointestinal perforation [Unknown]
  - Abdominal pain upper [Unknown]
  - Gastroenteritis [Unknown]
  - Off label use [Unknown]
